FAERS Safety Report 4394026-4 (Version None)
Quarter: 2004Q3

REPORT INFORMATION
  Report Type: 
  Country: None (occurrence: None)
  Receive Date: 20040707
  Receipt Date: 20040624
  Transmission Date: 20050211
  Serious: Yes (Hospitalization)
  Sender: FDA-Public Use
  Company Number: CHPA2003US02314

PATIENT
  Age: 61 Year
  Sex: Male
  Weight: 110.2 kg

DRUGS (23)
  1. EX-LAX LAXATIVE UNKNOWN FORMULA (NCH) (UNKNOWN) UNKNOWN [Suspect]
     Indication: WEIGHT DECREASED
     Dosage: ORAL
     Route: 048
     Dates: start: 19840101
  2. DULCOLAX [Suspect]
     Indication: WEIGHT DECREASED
     Dosage: ORAL
     Route: 048
     Dates: start: 19840101
  3. CORRECTOL [Suspect]
     Indication: WEIGHT DECREASED
     Dosage: ORAL
     Route: 048
     Dates: start: 19840101
  4. NORVASC [Concomitant]
  5. MERIDIA [Concomitant]
  6. FASTIN [Concomitant]
  7. PONDIMIN [Concomitant]
  8. PEPCID [Concomitant]
  9. VIOXX [Concomitant]
  10. MEDROL [Concomitant]
  11. SKELAXIN [Concomitant]
  12. ZANAFLEX [Concomitant]
  13. HYDROCODONE BITARTRATE [Concomitant]
  14. BENADRYL ^ACHE^ [Concomitant]
  15. AMBIEN [Concomitant]
  16. OXYCONTIN [Concomitant]
  17. TORADOL [Concomitant]
  18. NAPROSYN [Concomitant]
  19. ASPIRIN [Concomitant]
  20. ULTRACET [Concomitant]
  21. PHENTERMINE [Concomitant]
  22. FENFLURAMINE [Concomitant]
  23. MULTIVITAMIN [Concomitant]

REACTIONS (13)
  - ANAEMIA [None]
  - ANXIETY [None]
  - CELLULITIS [None]
  - DISEASE RECURRENCE [None]
  - DIVERTICULUM INTESTINAL HAEMORRHAGIC [None]
  - ECONOMIC PROBLEM [None]
  - HYPOTENSION [None]
  - INCISION SITE COMPLICATION [None]
  - INJURY [None]
  - LAXATIVE ABUSE [None]
  - POSTOPERATIVE INFECTION [None]
  - RECTAL HAEMORRHAGE [None]
  - WEIGHT DECREASED [None]
